FAERS Safety Report 16291873 (Version 2)
Quarter: 2019Q2

REPORT INFORMATION
  Report Type: Spontaneous
  Country: FR (occurrence: FR)
  Receive Date: 20190509
  Receipt Date: 20190624
  Transmission Date: 20190711
  Serious: Yes (Death)
  Sender: FDA-Public Use
  Company Number: FR-TAKEDA-2019TUS028021

PATIENT
  Age: 83 Year
  Sex: Male

DRUGS (4)
  1. DUROGESIC [Concomitant]
     Active Substance: FENTANYL
     Dosage: 50 MICROGRAM
     Route: 065
     Dates: start: 20190405, end: 20190424
  2. NINLARO [Suspect]
     Active Substance: IXAZOMIB CITRATE
     Indication: NEOPLASM MALIGNANT
     Dosage: 3 MILLIGRAM
     Route: 065
  3. ACTISKENAN [Concomitant]
     Active Substance: MORPHINE SULFATE
     Dosage: 5 MILLIGRAM, Q6HR
     Route: 065
     Dates: start: 20190412, end: 20190430
  4. DUROGESIC [Concomitant]
     Active Substance: FENTANYL
     Dosage: 75 MICROGRAM
     Route: 065
     Dates: start: 20190425, end: 20190430

REACTIONS (1)
  - Death [Fatal]

NARRATIVE: CASE EVENT DATE: 20190430
